FAERS Safety Report 8641115 (Version 5)
Quarter: 2013Q3

REPORT INFORMATION
  Report Type: Report from Study
  Country: JP (occurrence: JP)
  Receive Date: 20120628
  Receipt Date: 20130807
  Transmission Date: 20140515
  Serious: Yes (Life-Threatening, Hospitalization)
  Sender: FDA-Public Use
  Company Number: JP-PFIZER INC-2012152652

PATIENT
  Age: 33 Year
  Sex: Male
  Weight: 50.1 kg

DRUGS (8)
  1. XALKORI [Suspect]
     Indication: NON-SMALL CELL LUNG CANCER
     Dosage: 250 MG, 2X/DAY
     Route: 048
     Dates: start: 20120511, end: 20120523
  2. XALKORI [Suspect]
     Dosage: 250 MG, 2X/DAY
     Route: 048
     Dates: start: 20120529, end: 20120604
  3. XALKORI [Suspect]
     Dosage: 200 MG, 2X/DAY
     Route: 048
     Dates: start: 20120610, end: 20120611
  4. MINOFIT [Concomitant]
     Dosage: 40 ML, 1X/DAY
     Route: 042
     Dates: start: 20120604, end: 20120621
  5. URSODEOXYCHOLIC ACID [Concomitant]
     Dosage: 200 MG, 3X/DAY
     Route: 048
     Dates: start: 20120608, end: 20120626
  6. DECADRON [Concomitant]
     Dosage: 4 MG, 2X/DAY
     Route: 048
  7. TAKEPRON OD [Concomitant]
     Dosage: 15 MG, 1X/DAY
     Route: 048
  8. NAIXAN [Concomitant]
     Dosage: 100 MG, 3X/DAY
     Route: 048

REACTIONS (1)
  - Interstitial lung disease [Recovering/Resolving]
